FAERS Safety Report 9115340 (Version 1)
Quarter: 2013Q1

REPORT INFORMATION
  Report Type: Spontaneous
  Country: US (occurrence: None)
  Receive Date: 20130221
  Receipt Date: 20130221
  Transmission Date: 20140127
  Serious: Yes (Other)
  Sender: FDA-Public Use
  Company Number: None

PATIENT
  Age: 55 Year
  Sex: Female
  Weight: 81.65 kg

DRUGS (1)
  1. AMITRIPTYLINE 25MG [Suspect]
     Indication: SLEEP DISORDER
     Dates: start: 2005, end: 2013

REACTIONS (5)
  - Drug ineffective [None]
  - Rash [None]
  - Pyrexia [None]
  - Oropharyngeal pain [None]
  - Musculoskeletal stiffness [None]
